FAERS Safety Report 10713715 (Version 1)
Quarter: 2015Q1

REPORT INFORMATION
  Report Type: Report from Study
  Country: AU (occurrence: AU)
  Receive Date: 20150115
  Receipt Date: 20150115
  Transmission Date: 20150721
  Serious: Yes (Death)
  Sender: FDA-Public Use
  Company Number: AU-BAXTER-2015BAX001105

PATIENT

DRUGS (4)
  1. CELLTOP_ETOPOSIDE 20.00 MG/ML_SOLUTION FOR INJECTION_VIAL, GLASS [Suspect]
     Active Substance: ETOPOSIDE
     Indication: LYMPHOMA
     Dosage: FROM DAYS 1 TO 3
     Route: 040
  2. UROMITEXAN MESNA 1G_10ML INJECTION AMPOULE [Suspect]
     Active Substance: MESNA
     Indication: LYMPHOMA
     Dosage: ON DAY 2
     Route: 042
  3. CARBOPLATIN. [Suspect]
     Active Substance: CARBOPLATIN
     Indication: LYMPHOMA
     Dosage: ON DAY 2, (AREA UNDER THE CURVE [AUC] 5 5, CAPPED AT 800 MG/M2)
     Route: 042
  4. HOLOXAN IFOSFAMIDE 2G POWDER FOR INJECTION VIAL (OF) [Suspect]
     Active Substance: IFOSFAMIDE
     Indication: LYMPHOMA
     Dosage: ON DAY 2
     Route: 042

REACTIONS (3)
  - Disease progression [Fatal]
  - Lymphoma [None]
  - Malignant neoplasm progression [None]
